FAERS Safety Report 9614227 (Version 1)
Quarter: 2013Q4

REPORT INFORMATION
  Report Type: Spontaneous
  Country: ES (occurrence: ES)
  Receive Date: 20131011
  Receipt Date: 20131011
  Transmission Date: 20140711
  Serious: Yes (Hospitalization, Other)
  Sender: FDA-Public Use
  Company Number: ES-AMGEN-ESPSP2013070318

PATIENT
  Age: 83 Year
  Sex: Female

DRUGS (4)
  1. PROLIA [Suspect]
     Indication: PRODUCT USED FOR UNKNOWN INDICATION
     Dosage: UNK
     Route: 058
     Dates: start: 20130507, end: 2013
  2. INSULIN GLARGINE [Concomitant]
     Dosage: UNK
     Dates: start: 2007
  3. OPENVAS PLUS [Concomitant]
     Dosage: 20 MG, 12.5 MG, UNK
     Dates: start: 2012
  4. VELMETIA [Concomitant]
     Dosage: 50 MG, 1000 MG, UNK
     Dates: start: 2011

REACTIONS (6)
  - Urinary tract infection [Unknown]
  - Nervous system disorder [Unknown]
  - Pyrexia [Unknown]
  - Tremor [Unknown]
  - Encephalopathy [Unknown]
  - Epilepsy [Unknown]
